FAERS Safety Report 18389793 (Version 5)
Quarter: 2021Q3

REPORT INFORMATION
  Report Type: Spontaneous
  Country: JP (occurrence: JP)
  Receive Date: 20201016
  Receipt Date: 20210831
  Transmission Date: 20211014
  Serious: Yes (Hospitalization, Other)
  Sender: FDA-Public Use
  Company Number: JP-AMGEN-JPNSP2020127222

PATIENT
  Age: 82 Year
  Sex: Male
  Weight: 60 kg

DRUGS (18)
  1. VECTIBIX [Suspect]
     Active Substance: PANITUMUMAB
     Dosage: 100 MILLIGRAM
     Route: 042
     Dates: start: 20201224
  2. ETIZOLAM [Concomitant]
     Active Substance: ETIZOLAM
     Dosage: 0.5 MILLIGRAM, QD
     Route: 048
  3. GLACTIV [Concomitant]
     Active Substance: SITAGLIPTIN
     Dosage: 25 MILLIGRAM, QD
     Route: 048
  4. BAYASPIRIN [Concomitant]
     Active Substance: ASPIRIN
     Dosage: 100 MILLIGRAM, QD
     Route: 048
  5. VECTIBIX [Suspect]
     Active Substance: PANITUMUMAB
     Dosage: 100 MILLIGRAM, Q3WEEKS
     Route: 042
     Dates: start: 20200618
  6. VECTIBIX [Suspect]
     Active Substance: PANITUMUMAB
     Dosage: 100 MILLIGRAM, Q2WEEKS
     Route: 042
     Dates: start: 20200507
  7. ANTEBATE [Concomitant]
     Active Substance: BETAMETHASONE DIPROPIONATE
     Indication: SKIN DISORDER PROPHYLAXIS
     Dosage: UNK
     Route: 065
     Dates: start: 20191003
  8. PARIET [Concomitant]
     Active Substance: RABEPRAZOLE SODIUM
     Dosage: 10 MILLIGRAM, QD
     Route: 048
     Dates: end: 20191114
  9. MAGNESIUM OXIDE. [Concomitant]
     Active Substance: MAGNESIUM OXIDE
     Dosage: 250 MILLIGRAM, QD
     Route: 048
  10. KINDAVATE [Concomitant]
     Active Substance: CLOBETASONE BUTYRATE
     Indication: SKIN DISORDER PROPHYLAXIS
     Dosage: UNK
     Route: 065
     Dates: start: 20191003
  11. HEPARINOID [Concomitant]
     Active Substance: CHONDROITIN SULFATE (BOVINE)
     Indication: SKIN DISORDER PROPHYLAXIS
     Dosage: UNK
     Route: 065
     Dates: start: 20191003, end: 20191212
  12. VECTIBIX [Suspect]
     Active Substance: PANITUMUMAB
     Indication: COLON CANCER
     Dosage: 350 MILLIGRAM, Q2WEEKS
     Route: 042
     Dates: start: 20191003
  13. VECTIBIX [Suspect]
     Active Substance: PANITUMUMAB
     Dosage: 300 MILLIGRAM, Q2WEEKS
     Route: 042
     Dates: start: 20191114
  14. VECTIBIX [Suspect]
     Active Substance: PANITUMUMAB
     Dosage: 200 MILLIGRAM, Q2WEEKS
     Route: 042
     Dates: start: 20200130
  15. IMIDAPRIL HYDROCHLORIDE [Concomitant]
     Active Substance: IMIDAPRIL HYDROCHLORIDE
     Dosage: 5 MILLIGRAM, QD
     Route: 048
  16. SENNOSIDE A+B [Concomitant]
     Active Substance: SENNOSIDES A AND B
     Dosage: 12 MILLIGRAM
     Route: 048
  17. MINOMYCIN [Concomitant]
     Active Substance: MINOCYCLINE HYDROCHLORIDE
     Indication: SKIN DISORDER PROPHYLAXIS
     Dosage: 100 MILLIGRAM, BID
     Route: 048
     Dates: start: 20191003
  18. TIZANIDINE. [Concomitant]
     Active Substance: TIZANIDINE
     Dosage: 2 MILLIGRAM, BID
     Route: 048

REACTIONS (9)
  - Anaemia [Recovering/Resolving]
  - Hypomagnesaemia [Recovering/Resolving]
  - Metastases to liver [Unknown]
  - Condition aggravated [Unknown]
  - Dermatitis acneiform [Recovering/Resolving]
  - Dry skin [Recovering/Resolving]
  - Colon cancer [Not Recovered/Not Resolved]
  - Paronychia [Not Recovered/Not Resolved]
  - Disease progression [Not Recovered/Not Resolved]

NARRATIVE: CASE EVENT DATE: 20191017
